FAERS Safety Report 4379485-5 (Version None)
Quarter: 2004Q2

REPORT INFORMATION
  Report Type: 
  Country: None (occurrence: None)
  Receive Date: 20040614
  Receipt Date: 20040602
  Transmission Date: 20050107
  Serious: Yes (Hospitalization, Other)
  Sender: FDA-Public Use
  Company Number: US-2004-025467

PATIENT
  Age: 60 Year
  Sex: Female

DRUGS (1)
  1. BETASERON (INFERFERON BETA 1B) [Suspect]
     Indication: MULTIPLE SCLEROSIS
     Dosage: 8 MIU, EVERY 2D, SUBCUTANEOUS
     Route: 058
     Dates: start: 20031101, end: 20040115

REACTIONS (10)
  - COLOSTOMY [None]
  - DECREASED APPETITE [None]
  - DECUBITUS ULCER [None]
  - DYSPNOEA [None]
  - INFECTION [None]
  - MULTIPLE SCLEROSIS [None]
  - SPINAL CORD COMPRESSION [None]
  - VISUAL ACUITY REDUCED [None]
  - VISUAL DISTURBANCE [None]
  - WHITE BLOOD CELL DISORDER [None]
